FAERS Safety Report 7771452-4 (Version None)
Quarter: 2011Q3

REPORT INFORMATION
  Report Type: 
  Country: None (occurrence: None)
  Receive Date: 20110922
  Receipt Date: 20100922
  Transmission Date: 20111222
  Serious: No
  Sender: FDA-Public Use
  Company Number: US-ASTRAZENECA-2010SE44683

PATIENT
  Age: 691 Month
  Sex: Male
  Weight: 74.8 kg

DRUGS (3)
  1. WATER PILLS [Concomitant]
     Route: 065
  2. STALAVO [Concomitant]
     Indication: PARKINSON'S DISEASE
     Route: 065
  3. SEROQUEL [Suspect]
     Indication: PARKINSON'S DISEASE
     Route: 048
     Dates: start: 20080101

REACTIONS (5)
  - BALANCE DISORDER [None]
  - DRUG DOSE OMISSION [None]
  - FALL [None]
  - LIMB INJURY [None]
  - TREMOR [None]
